FAERS Safety Report 20637349 (Version 18)
Quarter: 2022Q4

REPORT INFORMATION
  Report Type: Report from Study
  Country: US (occurrence: None)
  Receive Date: 20220325
  Receipt Date: 20221101
  Transmission Date: 20230112
  Serious: Yes (Life-Threatening, Hospitalization)
  Sender: FDA-Public Use
  Company Number: US-Eisai Medical Research-EC-2022-111565

PATIENT
  Age: 83 Year
  Sex: Female
  Weight: 67 kg

DRUGS (14)
  1. LENVATINIB [Suspect]
     Active Substance: LENVATINIB
     Indication: Hepatocellular carcinoma
     Dosage: STARTING DOSE AT 12 MG, FLUCTUATED DOSAGE
     Route: 048
     Dates: start: 20220203, end: 20220317
  2. PEMBROLIZUMAB [Suspect]
     Active Substance: PEMBROLIZUMAB
     Indication: Hepatocellular carcinoma
     Dosage: MK-1308A 425 MILLIGRAM (PEMBROLIZUMAB 400MG/ QUAVONLIMAB (MK-1308) 25MG)
     Route: 042
     Dates: start: 20220203, end: 20220317
  3. QUAVONLIMAB [Suspect]
     Active Substance: QUAVONLIMAB
     Dosage: MK-1308A 425 MILLIGRAM (PEMBROLIZUMAB 400MG/ QUAVONLIMAB (MK-1308) 25MG)
     Route: 042
     Dates: start: 20220428
  4. PROTONIX [Concomitant]
     Active Substance: PANTOPRAZOLE SODIUM
     Dates: start: 20220114
  5. COLACE [Concomitant]
     Active Substance: DOCUSATE SODIUM
     Dates: start: 20220203
  6. METOPROLOL [Concomitant]
     Active Substance: METOPROLOL
     Dates: start: 2021
  7. COZAAR [Concomitant]
     Active Substance: LOSARTAN POTASSIUM
     Dates: start: 2021
  8. PRAVACHOL [Concomitant]
     Active Substance: PRAVASTATIN SODIUM
     Dates: start: 2021
  9. SYNTHROID [Concomitant]
     Active Substance: LEVOTHYROXINE SODIUM
     Dates: start: 2021
  10. NORVASC [Concomitant]
     Active Substance: AMLODIPINE BESYLATE
     Dates: start: 2021
  11. .ALPHA.-TOCOPHEROL [Concomitant]
     Active Substance: .ALPHA.-TOCOPHEROL
     Dates: start: 2021
  12. VITAMIN D3 [Concomitant]
     Active Substance: CHOLECALCIFEROL
     Dates: start: 2021
  13. HYDROCORTISONE [Concomitant]
     Active Substance: HYDROCORTISONE
     Dates: start: 20220310
  14. DEXTROSE POTASSIUM CHLORIDE [Concomitant]
     Dates: start: 20220317, end: 20220317

REACTIONS (1)
  - Cardiac failure congestive [Recovered/Resolved]

NARRATIVE: CASE EVENT DATE: 20220319
